FAERS Safety Report 5263065-3 (Version None)
Quarter: 2007Q1

REPORT INFORMATION
  Report Type: 
  Country: None (occurrence: None)
  Receive Date: 20070312
  Receipt Date: 20070228
  Transmission Date: 20070707
  Serious: Yes (Death)
  Sender: FDA-Public Use
  Company Number: US-PFIZER INC-2005145551

PATIENT
  Sex: Female
  Weight: 51.7 kg

DRUGS (4)
  1. GABAPENTIN [Suspect]
     Indication: FIBROMYALGIA
  2. CODEINE [Suspect]
  3. BUTALBITAL [Suspect]
  4. SALICYLATES [Suspect]

REACTIONS (4)
  - COMPLETED SUICIDE [None]
  - DRUG INEFFECTIVE [None]
  - DRUG TOXICITY [None]
  - INTENTIONAL OVERDOSE [None]
